FAERS Safety Report 8375767-0 (Version None)
Quarter: 2012Q2

REPORT INFORMATION
  Report Type: 
  Country: None (occurrence: None)
  Receive Date: 20120518
  Receipt Date: 20120518
  Transmission Date: 20120825
  Serious: Yes (Death)
  Sender: FDA-Public Use
  Company Number: None

PATIENT
  Sex: Female
  Weight: 113.3993 kg

DRUGS (1)
  1. HYDROMORPHONE HYDROCHLORIDE [Suspect]
     Indication: PAIN
     Dates: start: 20111025, end: 20111025

REACTIONS (7)
  - FOAMING AT MOUTH [None]
  - RESPIRATORY DISTRESS [None]
  - BLOOD PRESSURE INCREASED [None]
  - MALAISE [None]
  - DYSPNOEA [None]
  - RESPIRATORY ARREST [None]
  - PRODUCT QUALITY ISSUE [None]
